FAERS Safety Report 11972059 (Version 2)
Quarter: 2016Q2

REPORT INFORMATION
  Report Type: Report from Study
  Country: IN (occurrence: IN)
  Receive Date: 20160128
  Receipt Date: 20160621
  Transmission Date: 20160815
  Serious: Yes (Death, Disabling, Other)
  Sender: FDA-Public Use
  Company Number: PHHY2016IN008989

PATIENT
  Age: 78 Year
  Sex: Male

DRUGS (1)
  1. SEQUADRA INHALER [Suspect]
     Active Substance: GLYCOPYRRONIUM\INDACATEROL
     Indication: CHRONIC OBSTRUCTIVE PULMONARY DISEASE
     Dosage: QD
     Route: 055
     Dates: start: 20150930, end: 20160423

REACTIONS (3)
  - Hypokinesia [Unknown]
  - Death [Fatal]
  - Deafness [Not Recovered/Not Resolved]

NARRATIVE: CASE EVENT DATE: 20160118
